FAERS Safety Report 5186532-X (Version None)
Quarter: 2006Q4

REPORT INFORMATION
  Report Type: 
  Country: None (occurrence: None)
  Receive Date: 20061213
  Receipt Date: 20061128
  Transmission Date: 20070319
  Serious: Yes (Hospitalization, Other)
  Sender: FDA-Public Use
  Company Number: 2006RL000440

PATIENT
  Age: 62 Year
  Sex: Female

DRUGS (7)
  1. ISRADIPINE [Suspect]
     Indication: HYPERTENSION
     Dosage: 5 MG; QD; PO
     Route: 048
  2. NISISCO (CO-DIOVAN) [Suspect]
     Indication: DRUG USE FOR UNKNOWN INDICATION
     Dosage: 1 DF; QD; PO
     Route: 048
  3. METFORMIN HCL [Suspect]
     Indication: DIABETES MELLITUS
     Dosage: 1 GM; QD; PO
     Route: 048
  4. KETOPROFEN [Suspect]
     Indication: INFECTION
     Dosage: 100 MG; QD; IM
     Route: 030
     Dates: start: 20050127, end: 20050129
  5. DIAMICRON (GLICLAZIDE) (30 MG) [Suspect]
     Indication: DIABETES MELLITUS
     Dosage: 4 DF; QD; PO
     Route: 048
  6. ROCEPHINE /00672201/ (CEFTRIAXONE) [Suspect]
     Indication: UPPER RESPIRATORY TRACT INFECTION
     Dosage: 1 GM; QD; IM
     Route: 030
     Dates: start: 20050101
  7. LESCOL /01224501/ [Concomitant]

REACTIONS (11)
  - DECREASED APPETITE [None]
  - FLUID INTAKE REDUCED [None]
  - GASTRIC ULCER PERFORATION [None]
  - HAEMODIALYSIS [None]
  - HYPOGLYCAEMIA [None]
  - INFECTION [None]
  - LACTIC ACIDOSIS [None]
  - LOSS OF CONSCIOUSNESS [None]
  - PHARYNGITIS [None]
  - RENAL FAILURE ACUTE [None]
  - TOOTH DISORDER [None]
